FAERS Safety Report 7201929-1 (Version None)
Quarter: 2010Q4

REPORT INFORMATION
  Report Type: 
  Country: None (occurrence: None)
  Receive Date: 20101229
  Receipt Date: 20101228
  Transmission Date: 20110411
  Serious: Yes (Death)
  Sender: FDA-Public Use
  Company Number: GR-PFIZER INC-2010170021

PATIENT
  Age: 72 Year
  Sex: Female
  Weight: 50 kg

DRUGS (14)
  1. PIPERACILLIN AND TAZOBACTAM [Suspect]
     Indication: ABDOMINAL INFECTION
     Dosage: 4.5 G, 3X/DAY
     Route: 042
     Dates: start: 20090709, end: 20090714
  2. PIPERACILLIN AND TAZOBACTAM [Suspect]
     Dosage: 4.5 G, 3X/DAY
     Route: 042
     Dates: start: 20090727, end: 20090803
  3. PIPERACILLIN AND TAZOBACTAM [Suspect]
     Dosage: 4.5 G, 3X/DAY
     Route: 042
     Dates: start: 20090811, end: 20090825
  4. CLINDAMYCIN PHOSPHATE [Suspect]
     Indication: ABDOMINAL INFECTION
     Dosage: 300 MG, 3X/DAY
     Route: 042
     Dates: start: 20090718, end: 20090720
  5. METRONIDAZOLE [Suspect]
     Dosage: 500 MG, 2X/DAY
     Route: 042
     Dates: start: 20090703, end: 20090703
  6. METRONIDAZOLE [Suspect]
     Dosage: 500 MG, 3X/DAY
     Route: 042
     Dates: start: 20090704, end: 20090707
  7. CEFUROXIME [Suspect]
     Indication: ABDOMINAL INFECTION
     Dosage: 1 G, 2X/DAY
     Route: 042
     Dates: start: 20090703, end: 20090703
  8. CEFUROXIME [Suspect]
     Dosage: 1 G, 3X/DAY
     Route: 042
     Dates: start: 20090704, end: 20090708
  9. LEVOFLOXACIN [Suspect]
     Indication: ABDOMINAL INFECTION
     Dosage: 500 MG, 2X/DAY
     Route: 042
     Dates: start: 20090717, end: 20090722
  10. TEICOPLANIN [Suspect]
     Indication: ABDOMINAL INFECTION
     Dosage: 500 MG, 1X/DAY
     Route: 042
     Dates: start: 20090727, end: 20090727
  11. TEICOPLANIN [Suspect]
     Dosage: 500 MG, 2X/DAY
     Route: 042
     Dates: start: 20090728, end: 20090806
  12. TEICOPLANIN [Suspect]
     Dosage: 500 MG, 1X/DAY
     Route: 042
     Dates: start: 20090816, end: 20090825
  13. CASPOFUNGIN [Suspect]
     Indication: ABDOMINAL INFECTION
     Dosage: 75 MG, 1X/DAY
     Route: 042
     Dates: start: 20090824, end: 20090824
  14. CASPOFUNGIN [Suspect]
     Dosage: 50 MG, 1X/DAY
     Route: 042
     Dates: start: 20090825, end: 20090825

REACTIONS (3)
  - ABDOMINAL INFECTION [None]
  - INTESTINAL PERFORATION [None]
  - SEPTIC SHOCK [None]
